FAERS Safety Report 5175273-0 (Version None)
Quarter: 2006Q4

REPORT INFORMATION
  Report Type: 
  Country: None (occurrence: None)
  Receive Date: 20061211
  Receipt Date: 20061211
  Transmission Date: 20070319
  Serious: No
  Sender: FDA-Public Use
  Company Number: None

PATIENT
  Age: 60 Year
  Sex: Female
  Weight: 46.2669 kg

DRUGS (5)
  1. BONIVA [Suspect]
     Indication: OSTEOPENIA
     Dosage: ONE TABLET MONTHLY
     Dates: start: 20060612, end: 20060801
  2. SYNTHROID [Concomitant]
  3. ESTRADIOL INJ [Concomitant]
  4. PROMETRIUM [Concomitant]
  5. ESTRACE [Concomitant]

REACTIONS (8)
  - BACK PAIN [None]
  - DIARRHOEA [None]
  - DYSPEPSIA [None]
  - FLATULENCE [None]
  - FLUSHING [None]
  - INFLUENZA LIKE ILLNESS [None]
  - NAUSEA [None]
  - PYREXIA [None]
